FAERS Safety Report 10431797 (Version 2)
Quarter: 2014Q4

REPORT INFORMATION
  Report Type: Spontaneous
  Country: JP (occurrence: JP)
  Receive Date: 20140905
  Receipt Date: 20141001
  Transmission Date: 20150528
  Serious: Yes (Other)
  Sender: FDA-Public Use
  Company Number: JP-AMGEN-JPNSP2014067400

PATIENT
  Age: 65 Year
  Sex: Male
  Weight: 62 kg

DRUGS (13)
  1. VECTIBIX [Suspect]
     Active Substance: PANITUMUMAB
     Indication: METASTASES TO LIVER
  2. IOMEPROL [Suspect]
     Active Substance: IOMEPROL
     Indication: SCAN WITH CONTRAST
     Dosage: 100 ML, QD
     Route: 042
     Dates: start: 20140825, end: 20140825
  3. CALCIUM LEVOFOLINATE [Suspect]
     Active Substance: LEVOLEUCOVORIN CALCIUM
     Indication: COLON CANCER
     Dosage: 340 MG, Q2WEEKS
     Route: 041
     Dates: start: 20140512, end: 20140820
  4. POLARAMINE REPETABS [Concomitant]
     Indication: ANTIALLERGIC THERAPY
     Dosage: 5 MG, Q2WEEKS
     Route: 041
     Dates: start: 20140512, end: 20140820
  5. ALOXI [Concomitant]
     Active Substance: PALONOSETRON HYDROCHLORIDE
     Indication: PROPHYLAXIS OF NAUSEA AND VOMITING
     Dosage: 0.75 MG, Q2WEEKS
     Route: 041
     Dates: start: 20140512, end: 20140820
  6. ELPLAT [Suspect]
     Active Substance: OXALIPLATIN
     Indication: COLON CANCER
     Dosage: 140 MG, Q2WEEKS
     Route: 041
     Dates: start: 20140512, end: 20140820
  7. ELPLAT [Suspect]
     Active Substance: OXALIPLATIN
     Indication: METASTASES TO LIVER
  8. DEXART [Concomitant]
     Active Substance: DEXAMETHASONE SODIUM PHOSPHATE
     Indication: ANTIEMETIC SUPPORTIVE CARE
     Dosage: 6.6 MG, Q2WEEKS
     Route: 041
     Dates: start: 20140512, end: 20140820
  9. FLUOROURACIL. [Suspect]
     Active Substance: FLUOROURACIL
     Indication: COLON CANCER
     Dosage: 680 MG, Q2WEEKS
     Route: 040
     Dates: start: 20140512, end: 20140820
  10. FLUOROURACIL. [Suspect]
     Active Substance: FLUOROURACIL
     Indication: METASTASES TO LIVER
     Dosage: 4000 MG, Q2WEEKS
     Route: 041
     Dates: start: 20140512, end: 20140820
  11. LEUCON /00300201/ [Suspect]
     Active Substance: ADENINE
     Indication: WHITE BLOOD CELL COUNT DECREASED
     Dosage: 30 MG, TID
     Route: 048
     Dates: start: 20140806, end: 20140827
  12. VECTIBIX [Suspect]
     Active Substance: PANITUMUMAB
     Indication: COLON CANCER
     Dosage: 370 MG, Q2WEEKS
     Route: 041
     Dates: start: 20140528, end: 20140820
  13. CALCIUM LEVOFOLINATE [Suspect]
     Active Substance: LEVOLEUCOVORIN CALCIUM
     Indication: METASTASES TO LIVER

REACTIONS (11)
  - Rash [Unknown]
  - Arthralgia [None]
  - Stoma site pain [Recovering/Resolving]
  - White blood cell count decreased [Unknown]
  - Nausea [Unknown]
  - Loss of consciousness [None]
  - Joint effusion [Unknown]
  - Dizziness [Unknown]
  - Arthralgia [Unknown]
  - Faeces hard [Recovering/Resolving]
  - Subdural hygroma [Recovering/Resolving]

NARRATIVE: CASE EVENT DATE: 20140625
